FAERS Safety Report 24458438 (Version 1)
Quarter: 2024Q4

REPORT INFORMATION
  Report Type: Spontaneous
  Country: PL (occurrence: PL)
  Receive Date: 20241018
  Receipt Date: 20241018
  Transmission Date: 20250115
  Serious: Yes (Other)
  Sender: ABBVIE
  Company Number: PL-ABBVIE-5929631

PATIENT
  Age: 81 Year
  Sex: Female

DRUGS (2)
  1. VENETOCLAX [Suspect]
     Active Substance: VENETOCLAX
     Indication: Acute myeloid leukaemia
     Route: 048
     Dates: start: 202408
  2. AZACITIDINE [Concomitant]
     Active Substance: AZACITIDINE
     Indication: Acute myeloid leukaemia

REACTIONS (4)
  - White blood cell count decreased [Not Recovered/Not Resolved]
  - Haemoglobin decreased [Not Recovered/Not Resolved]
  - Blast cells present [Not Recovered/Not Resolved]
  - Neutrophil count decreased [Not Recovered/Not Resolved]

NARRATIVE: CASE EVENT DATE: 20240801
